FAERS Safety Report 23138632 (Version 1)
Quarter: 2023Q4

REPORT INFORMATION
  Report Type: Report from Study
  Country: US (occurrence: US)
  Receive Date: 20231102
  Receipt Date: 20231102
  Transmission Date: 20240109
  Serious: Yes (Hospitalization, Other)
  Sender: FDA-Public Use
  Company Number: US-ABBVIE-5477626

PATIENT
  Sex: Male

DRUGS (1)
  1. SKYRIZI [Suspect]
     Active Substance: RISANKIZUMAB-RZAA
     Indication: Crohn^s disease
     Route: 042
     Dates: start: 20231020

REACTIONS (4)
  - Infection [Recovered/Resolved]
  - Abscess [Unknown]
  - Gastrointestinal surgery [Unknown]
  - Fistula [Unknown]

NARRATIVE: CASE EVENT DATE: 20230101
